FAERS Safety Report 7182327-6 (Version None)
Quarter: 2010Q4

REPORT INFORMATION
  Report Type: 
  Country: None (occurrence: None)
  Receive Date: 20101221
  Receipt Date: 20100511
  Transmission Date: 20110411
  Serious: No
  Sender: FDA-Public Use
  Company Number: US-AMGEN-TCS411998

PATIENT

DRUGS (1)
  1. ENBREL [Suspect]
     Indication: PSORIASIS
     Dosage: 50 MG, UNK
     Route: 058
     Dates: start: 20100422

REACTIONS (5)
  - COUGH [None]
  - FATIGUE [None]
  - INJECTION SITE HAEMATOMA [None]
  - NASAL CONGESTION [None]
  - RHINORRHOEA [None]
